FAERS Safety Report 10210949 (Version 1)
Quarter: 2014Q2

REPORT INFORMATION
  Report Type: Spontaneous
  Country: FR (occurrence: FR)
  Receive Date: 20140602
  Receipt Date: 20140602
  Transmission Date: 20141212
  Serious: Yes (Other)
  Sender: FDA-Public Use
  Company Number: FR-BRISTOL-MYERS SQUIBB COMPANY-20809869

PATIENT
  Age: 56 Year
  Sex: Male

DRUGS (1)
  1. KENACORT RETARD INJ [Suspect]
     Indication: HYPERSENSITIVITY
     Dosage: PARTIAL ADMINISTRATION OF 1 VIAL DOSED AT 80 MG
     Route: 030
     Dates: end: 20140424

REACTIONS (5)
  - Malaise [Recovering/Resolving]
  - Back pain [Recovering/Resolving]
  - Chills [Recovering/Resolving]
  - Nausea [Recovering/Resolving]
  - Hot flush [Recovering/Resolving]
